FAERS Safety Report 17681453 (Version 1)
Quarter: 2020Q2

REPORT INFORMATION
  Report Type: Spontaneous
  Country: SK (occurrence: SK)
  Receive Date: 20200417
  Receipt Date: 20200417
  Transmission Date: 20200714
  Serious: Yes (Life-Threatening, Other)
  Sender: FDA-Public Use
  Company Number: SK-TEVA-2020-SK-1226085

PATIENT
  Sex: Male

DRUGS (5)
  1. G-CSF [Suspect]
     Active Substance: GRANULOCYTE COLONY-STIMULATING FACTOR NOS
  2. DEXAMETHASONE. [Suspect]
     Active Substance: DEXAMETHASONE
     Route: 065
  3. ARABINOZIDE C [Suspect]
     Active Substance: CYTARABINE
     Route: 065
  4. RITUXIMAB. [Suspect]
     Active Substance: RITUXIMAB
     Route: 065
  5. CISPLATIN. [Suspect]
     Active Substance: CISPLATIN
     Route: 065

REACTIONS (6)
  - Anaemia [Recovered/Resolved]
  - Haematotoxicity [Recovered/Resolved]
  - Abscess limb [Recovered/Resolved]
  - Febrile neutropenia [Recovered/Resolved]
  - Immune thrombocytopenia [Recovered/Resolved]
  - Neutropenia [Recovered/Resolved]
